FAERS Safety Report 7183618-5 (Version None)
Quarter: 2010Q4

REPORT INFORMATION
  Report Type: 
  Country: None (occurrence: None)
  Receive Date: 20101222
  Receipt Date: 20100318
  Transmission Date: 20110411
  Serious: No
  Sender: FDA-Public Use
  Company Number: US-ABBOTT-10P-163-0633994-00

PATIENT
  Sex: Female
  Weight: 88.53 kg

DRUGS (4)
  1. TEVETEN [Suspect]
     Indication: CARDIOMYOPATHY
     Route: 048
     Dates: start: 20030101
  2. TEVETEN [Suspect]
  3. TEVETEN [Suspect]
  4. TEVETEN [Suspect]

REACTIONS (3)
  - DYSPNOEA [None]
  - MALAISE [None]
  - THROAT TIGHTNESS [None]
